FAERS Safety Report 6382946-0 (Version None)
Quarter: 2009Q3

REPORT INFORMATION
  Report Type: 
  Country: None (occurrence: None)
  Receive Date: 20090930
  Receipt Date: 20090917
  Transmission Date: 20100115
  Serious: Yes (Hospitalization)
  Sender: FDA-Public Use
  Company Number: FR-PFIZER INC-2009270407

PATIENT
  Age: 40 Year

DRUGS (7)
  1. XANAX [Suspect]
     Indication: DEPRESSION
     Dosage: UNK
     Route: 048
     Dates: start: 20080301, end: 20090730
  2. TEGRETOL [Suspect]
     Indication: DEPRESSION
     Dosage: UNK
     Route: 048
     Dates: start: 20090730, end: 20090821
  3. SERESTA [Suspect]
     Indication: DEPRESSION
     Dosage: UNK
     Route: 048
     Dates: start: 20090730, end: 20090825
  4. ZYPREXA [Suspect]
     Indication: DEPRESSION
     Dosage: UNK
     Route: 048
     Dates: start: 20080301, end: 20090730
  5. ADVIL [Suspect]
     Indication: HEADACHE
     Dosage: UNK
     Dates: start: 20090803, end: 20090807
  6. ADVIL [Suspect]
     Indication: ODYNOPHAGIA
  7. AUGMENTIN [Suspect]
     Indication: PHARYNGITIS
     Dosage: UNK
     Dates: start: 20090807, end: 20090810

REACTIONS (1)
  - DRUG RASH WITH EOSINOPHILIA AND SYSTEMIC SYMPTOMS [None]
